FAERS Safety Report 10210024 (Version 2)
Quarter: 2014Q2

REPORT INFORMATION
  Report Type: Spontaneous
  Country: FR (occurrence: FR)
  Receive Date: 20140602
  Receipt Date: 20140618
  Transmission Date: 20141212
  Serious: Yes (Hospitalization, Other)
  Sender: FDA-Public Use
  Company Number: FR-JNJFOC-20140517202

PATIENT
  Age: 64 Year
  Sex: Female
  Weight: 107 kg

DRUGS (3)
  1. REMICADE [Suspect]
     Indication: RHEUMATOID ARTHRITIS
     Route: 042
  2. METHOTREXATE [Concomitant]
     Route: 065
  3. CORTANCYL [Concomitant]
     Route: 065

REACTIONS (4)
  - Angioedema [Unknown]
  - Infusion related reaction [Unknown]
  - Anaphylactic shock [Unknown]
  - Bradycardia [Unknown]
